FAERS Safety Report 11513825 (Version 1)
Quarter: 2015Q3

REPORT INFORMATION
  Report Type: Spontaneous
  Country: US (occurrence: US)
  Receive Date: 20150903
  Receipt Date: 20150903
  Transmission Date: 20151125
  Serious: No
  Sender: FDA-Public Use
  Company Number: US-ELI_LILLY_AND_COMPANY-US201210002314

PATIENT
  Sex: Female
  Weight: 2.61 kg

DRUGS (4)
  1. CYMBALTA [Suspect]
     Active Substance: DULOXETINE HYDROCHLORIDE
     Indication: MAJOR DEPRESSION
     Dosage: 20 MG, QID
     Route: 064
  2. PRENATAL [Concomitant]
     Active Substance: VITAMINS
  3. PRENATAL [Concomitant]
     Active Substance: VITAMINS
  4. CYMBALTA [Suspect]
     Active Substance: DULOXETINE HYDROCHLORIDE
     Indication: MAJOR DEPRESSION
     Dosage: 20 MG, QID
     Route: 064

REACTIONS (3)
  - Foetal exposure during pregnancy [Unknown]
  - Feeding disorder of infancy or early childhood [Recovered/Resolved]
  - Premature baby [Recovered/Resolved]
